FAERS Safety Report 17178828 (Version 3)
Quarter: 2020Q1

REPORT INFORMATION
  Report Type: Spontaneous
  Country: JP (occurrence: JP)
  Receive Date: 20191219
  Receipt Date: 20200306
  Transmission Date: 20200409
  Serious: Yes (Hospitalization, Other)
  Sender: FDA-Public Use
  Company Number: JP-ASTRAZENECA-2019SF67314

PATIENT
  Age: 24061 Day
  Sex: Male
  Weight: 68 kg

DRUGS (1)
  1. IMFINZI [Suspect]
     Active Substance: DURVALUMAB
     Indication: NON-SMALL CELL LUNG CANCER
     Route: 041
     Dates: start: 20190919, end: 20191021

REACTIONS (2)
  - Interstitial lung disease [Recovered/Resolved with Sequelae]
  - Respiratory failure [Unknown]

NARRATIVE: CASE EVENT DATE: 20191101
